FAERS Safety Report 14688750 (Version 2)
Quarter: 2018Q2

REPORT INFORMATION
  Report Type: Spontaneous
  Country: LB (occurrence: LB)
  Receive Date: 20180328
  Receipt Date: 20180402
  Transmission Date: 20180711
  Serious: Yes (Hospitalization)
  Sender: FDA-Public Use
  Company Number: LB-MYLANLABS-2018M1018319

PATIENT
  Age: 51 Year
  Sex: Male

DRUGS (1)
  1. METHOTREXATE. [Suspect]
     Active Substance: METHOTREXATE
     Indication: PSORIASIS
     Dosage: 20 MG DAILY
     Route: 048

REACTIONS (7)
  - Toxicity to various agents [Recovering/Resolving]
  - Condition aggravated [Recovering/Resolving]
  - Neutropenia [Recovered/Resolved]
  - Overdose [Recovering/Resolving]
  - Psoriasis [Recovering/Resolving]
  - Incorrect dose administered [Recovering/Resolving]
  - Mucocutaneous ulceration [Recovering/Resolving]
